FAERS Safety Report 6755886-2 (Version None)
Quarter: 2010Q2

REPORT INFORMATION
  Report Type: 
  Country: None (occurrence: None)
  Receive Date: 20100604
  Receipt Date: 20100528
  Transmission Date: 20101027
  Serious: Yes (Hospitalization)
  Sender: FDA-Public Use
  Company Number: CA-BRISTOL-MYERS SQUIBB COMPANY-15039670

PATIENT
  Age: 78 Year
  Sex: Male

DRUGS (10)
  1. ORENCIA [Suspect]
     Indication: RHEUMATOID ARTHRITIS
     Dosage: NO OF INF-4;LAST INF 28MAY2010
     Route: 042
     Dates: start: 20100312
  2. PREDNISONE TAB [Concomitant]
  3. LIPITOR [Concomitant]
  4. BISOPROLOL [Concomitant]
  5. RAMIPRIL [Concomitant]
  6. RABEPRAZOLE SODIUM [Concomitant]
  7. CALCIUM CARBONATE [Concomitant]
  8. VITAMIN D [Concomitant]
  9. FOLIC ACID [Concomitant]
  10. ETIDRONATE + CALCIUM CARBONATE [Concomitant]

REACTIONS (7)
  - DIARRHOEA [None]
  - DYSPNOEA [None]
  - FATIGUE [None]
  - MALAISE [None]
  - PYREXIA [None]
  - SEASONAL ALLERGY [None]
  - VOMITING [None]
